FAERS Safety Report 9217162 (Version 2)
Quarter: 2013Q2

REPORT INFORMATION
  Report Type: Spontaneous
  Country: US (occurrence: None)
  Receive Date: 20130404
  Receipt Date: 20130614
  Transmission Date: 20140414
  Serious: Yes (Hospitalization)
  Sender: FDA-Public Use
  Company Number: 201303058

PATIENT
  Age: 61 Year
  Sex: Male
  Weight: 77.11 kg

DRUGS (6)
  1. TESTIM [Suspect]
     Indication: BLOOD TESTOSTERONE DECREASED
     Dosage: 50 MG, 1 IN 1 D, TRANSDERMAL
     Route: 062
     Dates: start: 2013
  2. ZOLOFT(SERTRALINE HYDROCHLORIDE) [Concomitant]
  3. NEXIUM(ESOMEPRAZOLE MAGNESIUM) [Concomitant]
  4. REQUIP(ROPINIROLE HYDROCHLORIDE) [Concomitant]
  5. DIAZEPAM(DIAZEPAM) [Concomitant]
  6. OXYCODONE(OXYCODONE) [Concomitant]

REACTIONS (4)
  - Scar [None]
  - Oesophageal operation [None]
  - Weight decreased [None]
  - Oesophageal stenosis [None]
